FAERS Safety Report 12188937 (Version 4)
Quarter: 2016Q3

REPORT INFORMATION
  Report Type: Report from Study
  Country: PL (occurrence: PL)
  Receive Date: 20160317
  Receipt Date: 20160815
  Transmission Date: 20161109
  Serious: Yes (Life-Threatening, Hospitalization, Other)
  Sender: FDA-Public Use
  Company Number: PL-GILEAD-2015-0175154

PATIENT
  Age: 66 Year
  Sex: Male
  Weight: 61 kg

DRUGS (10)
  1. RITUXIMAB [Suspect]
     Active Substance: RITUXIMAB
     Dosage: 656 MG, Q1WK
     Route: 042
     Dates: start: 20150820, end: 20150820
  2. RITUXIMAB [Suspect]
     Active Substance: RITUXIMAB
     Dosage: 656 MG, Q1WK
     Route: 042
     Dates: start: 20150826, end: 20150826
  3. ENARENAL [Concomitant]
     Active Substance: ENALAPRIL
     Indication: HYPERTENSION
     Route: 048
     Dates: start: 2005
  4. ELECTROLYTE SOLUTIONS              /07473201/ [Concomitant]
     Indication: DEHYDRATION
     Route: 041
     Dates: start: 20150811, end: 20150811
  5. IDELALISIB [Suspect]
     Active Substance: IDELALISIB
     Indication: CHRONIC LYMPHOCYTIC LEUKAEMIA
     Dosage: 150 MG, BID
     Route: 048
     Dates: start: 20150807, end: 20150904
  6. IDELALISIB [Suspect]
     Active Substance: IDELALISIB
     Dosage: 100 MG, BID
     Route: 048
     Dates: start: 20151210, end: 20151229
  7. RITUXIMAB [Suspect]
     Active Substance: RITUXIMAB
     Indication: CHRONIC LYMPHOCYTIC LEUKAEMIA
     Dosage: 656 MG, Q1WK
     Route: 042
     Dates: start: 20150807, end: 20150807
  8. RITUXIMAB [Suspect]
     Active Substance: RITUXIMAB
     Dosage: 656 MG, Q1WK
     Route: 042
     Dates: start: 20150902, end: 20150902
  9. RITUXIMAB [Suspect]
     Active Substance: RITUXIMAB
     Dosage: 656 MG, Q1WK
     Route: 042
     Dates: start: 20150813, end: 20150813
  10. ALLOPURINOL. [Concomitant]
     Active Substance: ALLOPURINOL
     Dosage: UNK
     Route: 048
     Dates: start: 20150806, end: 20151027

REACTIONS (5)
  - Thrombocytopenia [Recovered/Resolved]
  - Interstitial lung disease [Recovered/Resolved]
  - Atrial fibrillation [Recovered/Resolved]
  - Epistaxis [Recovered/Resolved]
  - Febrile neutropenia [Recovered/Resolved]

NARRATIVE: CASE EVENT DATE: 20150907
